FAERS Safety Report 15284400 (Version 2)
Quarter: 2018Q4

REPORT INFORMATION
  Report Type: Spontaneous
  Country: PL (occurrence: PL)
  Receive Date: 20180816
  Receipt Date: 20181025
  Transmission Date: 20190204
  Serious: Yes (Hospitalization)
  Sender: FDA-Public Use
  Company Number: PL-SA-2018SA152475

PATIENT
  Age: 48 Year
  Sex: Female

DRUGS (10)
  1. METOPROLOL SUCCINATE. [Suspect]
     Active Substance: METOPROLOL SUCCINATE
     Indication: HYPERTENSION
     Dosage: 25 MILLIGRAM DAILY; IN MORNING
     Route: 048
  2. PERINDOPRIL ZENTIVA [Concomitant]
     Dosage: 5 MG, UNK
     Route: 065
  3. AMLODIPINE [Concomitant]
     Active Substance: AMLODIPINE BESYLATE
     Dosage: 10 MG IN ONE DOSE OF THE MORNING
     Route: 065
  4. RAMIPRIL. [Suspect]
     Active Substance: RAMIPRIL
     Indication: HYPERTENSION
     Dosage: 5 MG I X DAY - IN THE EVENING
     Route: 048
  5. INDAPAMIDE. [Suspect]
     Active Substance: INDAPAMIDE
     Dosage: 1.5 MG 1 X DAILY IN THE MORNING
     Route: 065
  6. FUROSEMIDE. [Concomitant]
     Active Substance: FUROSEMIDE
     Indication: HYPERTENSIVE CRISIS
     Dosage: 20 MG, UNK
     Route: 042
  7. URAPIDIL [Concomitant]
     Active Substance: URAPIDIL
     Indication: HYPERTENSIVE CRISIS
     Dosage: UNK UNK, UNK
     Route: 042
  8. LACIDIPINE [Suspect]
     Active Substance: LACIDIPINE
     Indication: HYPERTENSION
     Dosage: 2 MG 2 X DAY
     Route: 048
  9. INDAPAMIDE. [Suspect]
     Active Substance: INDAPAMIDE
     Indication: HYPERTENSION
     Dosage: 5 MILLIGRAM DAILY; IN EVENING
     Route: 065
  10. CAPTOPRIL. [Concomitant]
     Active Substance: CAPTOPRIL
     Dosage: 25 MG, UNK
     Route: 060

REACTIONS (6)
  - Treatment noncompliance [Unknown]
  - Blood pressure increased [Recovering/Resolving]
  - Product dose omission [Unknown]
  - Malaise [Recovering/Resolving]
  - Blood pressure fluctuation [Recovering/Resolving]
  - Treatment failure [Unknown]
